FAERS Safety Report 4886597-6 (Version None)
Quarter: 2005Q4

REPORT INFORMATION
  Report Type: 
  Country: None (occurrence: None)
  Receive Date: 20051220
  Receipt Date: 20050725
  Transmission Date: 20060501
  Serious: Yes (Other)
  Sender: FDA-Public Use
  Company Number: HQWYE564027JUL05

PATIENT
  Sex: Female

DRUGS (2)
  1. EFFEXOR XR [Suspect]
     Indication: PAIN
     Dosage: 75 MG 1X PER 1 DAY, ORAL
     Route: 048
  2. EFFEXOR XR [Suspect]
     Indication: SYSTEMIC LUPUS ERYTHEMATOSUS
     Dosage: 75 MG 1X PER 1 DAY, ORAL
     Route: 048

REACTIONS (1)
  - CONVULSION [None]
